FAERS Safety Report 18136074 (Version 2)
Quarter: 2020Q3

REPORT INFORMATION
  Report Type: Spontaneous
  Country: US (occurrence: US)
  Receive Date: 20200811
  Receipt Date: 20200915
  Transmission Date: 20201103
  Serious: No
  Sender: FDA-Public Use
  Company Number: US-BAUSCH-BL-2020-022376

PATIENT
  Age: 9 Decade
  Sex: Female
  Weight: 65.38 kg

DRUGS (1)
  1. BRIMONIDINE TARTRATE OPHTHALMIC SOLUTION 0.2% [Suspect]
     Active Substance: BRIMONIDINE TARTRATE
     Indication: GLAUCOMA
     Dosage: APPROXIMATELY 5 TO 6 YEARS PRIOR TO INITIAL REPORT OR MIGHT BE MORE?IN THE RIGHT EYE
     Route: 047

REACTIONS (2)
  - Product packaging difficult to open [Unknown]
  - Rash [Recovering/Resolving]

NARRATIVE: CASE EVENT DATE: 2020
